FAERS Safety Report 4554404-7 (Version None)
Quarter: 2005Q1

REPORT INFORMATION
  Report Type: 
  Country: None (occurrence: None)
  Receive Date: 20050118
  Receipt Date: 20040715
  Transmission Date: 20050727
  Serious: Yes (Other)
  Sender: FDA-Public Use
  Company Number: US-BRISTOL-MYERS SQUIBB COMPANY-12642146

PATIENT
  Age: 59 Year
  Sex: Female

DRUGS (4)
  1. ESTRACE [Suspect]
     Indication: HORMONE REPLACEMENT THERAPY
     Dosage: DOSING: 2MG ON DAYS 1 THROUGH 25
     Dates: start: 19911219, end: 19950101
  2. PREMARIN [Suspect]
     Indication: HORMONE REPLACEMENT THERAPY
     Dates: start: 19830101, end: 19911001
  3. PROVERA [Suspect]
     Indication: HORMONE REPLACEMENT THERAPY
     Dosage: THERAPY INTERRUPTED FROM OCT-1991 TO DEC-1991; DOSING: 10MG ON DAYS 16 THROUGH 25
     Dates: start: 19830101, end: 19950101
  4. PREMPRO [Suspect]
     Indication: HORMONE REPLACEMENT THERAPY
     Dates: start: 19950101, end: 20020417

REACTIONS (11)
  - BREAST CANCER [None]
  - CHEST WALL ABSCESS [None]
  - FIBROCYSTIC BREAST DISEASE [None]
  - IMPAIRED HEALING [None]
  - IMPLANT SITE INFECTION [None]
  - METRORRHAGIA [None]
  - OESTROGEN RECEPTOR ASSAY POSITIVE [None]
  - PAPILLOMA [None]
  - PROGESTERONE RECEPTOR ASSAY POSITIVE [None]
  - SECRETION DISCHARGE [None]
  - SEROMA [None]
